FAERS Safety Report 24715611 (Version 2)
Quarter: 2024Q4

REPORT INFORMATION
  Report Type: Report from Study
  Country: FR (occurrence: FR)
  Receive Date: 20241210
  Receipt Date: 20241227
  Transmission Date: 20250115
  Serious: Yes (Other)
  Sender: RANBAXY
  Company Number: FR-SUN PHARMACEUTICAL INDUSTRIES LTD-2024R1-483468

PATIENT
  Sex: Female

DRUGS (4)
  1. OCTREOTIDE [Suspect]
     Active Substance: OCTREOTIDE
     Indication: Albright^s disease
     Dosage: UNK
     Route: 065
  2. LANREOTIDE [Suspect]
     Active Substance: LANREOTIDE
     Indication: Albright^s disease
     Dosage: UNK
     Route: 065
  3. PASIREOTIDE [Suspect]
     Active Substance: PASIREOTIDE
     Indication: Albright^s disease
     Dosage: 20 MILLIGRAM, MONTHLY
     Route: 065
  4. PEGVISOMANT [Suspect]
     Active Substance: PEGVISOMANT
     Indication: Albright^s disease
     Dosage: 10 MILLIGRAM, DAILY
     Route: 065

REACTIONS (9)
  - Exposure during pregnancy [Unknown]
  - Impaired fasting glucose [Unknown]
  - Syncope [Unknown]
  - Abdominal pain [Unknown]
  - Headache [Unknown]
  - Asthenia [Unknown]
  - Nausea [Unknown]
  - Drug intolerance [Unknown]
  - Diarrhoea [Unknown]
